FAERS Safety Report 10193406 (Version 1)
Quarter: 2014Q2

REPORT INFORMATION
  Report Type: Spontaneous
  Country: US (occurrence: US)
  Receive Date: 20140524
  Receipt Date: 20140524
  Transmission Date: 20141212
  Serious: No
  Sender: FDA-Public Use
  Company Number: US-SA-2013SA114821

PATIENT
  Age: 48 Year
  Sex: Female
  Weight: 63 kg

DRUGS (13)
  1. LANTUS SOLOSTAR [Suspect]
     Indication: TYPE 2 DIABETES MELLITUS
     Dosage: DOSE:50 UNIT(S)
     Route: 051
  2. NOVOLOG [Suspect]
     Indication: TYPE 2 DIABETES MELLITUS
     Dosage: DOSE:10 UNIT(S)
     Route: 065
  3. SOLOSTAR [Concomitant]
  4. SINGULAIR [Concomitant]
  5. ADVAIR DISKUS [Concomitant]
     Dosage: 250-50 MCG
  6. PRO-AIR [Concomitant]
  7. STRESS FORMULA MULTI B COMPLEX W/C 500 [Concomitant]
  8. AMITRIPTYLINE HYDROCHLORIDE [Concomitant]
  9. LYRICA [Concomitant]
  10. DILANTIN [Concomitant]
  11. KEPPRA [Concomitant]
  12. NEXIUM [Concomitant]
  13. LISINOPRIL [Concomitant]

REACTIONS (2)
  - Malaise [Not Recovered/Not Resolved]
  - Vision blurred [Not Recovered/Not Resolved]
